FAERS Safety Report 4547984-9 (Version None)
Quarter: 2004Q4

REPORT INFORMATION
  Report Type: 
  Country: None (occurrence: None)
  Receive Date: 20041220
  Receipt Date: 20041018
  Transmission Date: 20050328
  Serious: Yes (Death, Other)
  Sender: FDA-Public Use
  Company Number: USA041081319

PATIENT
  Age: 66 Year
  Sex: Male
  Weight: 102 kg

DRUGS (2)
  1. HUMULIN R [Suspect]
  2. HUMULIN N [Suspect]
     Dates: start: 19830101

REACTIONS (4)
  - BLOOD GLUCOSE DECREASED [None]
  - BLOOD GLUCOSE INCREASED [None]
  - CARCINOMA [None]
  - LARYNGEAL CANCER [None]
